FAERS Safety Report 19936997 (Version 2)
Quarter: 2021Q4

REPORT INFORMATION
  Report Type: Report from Study
  Country: BR (occurrence: BR)
  Receive Date: 20211009
  Receipt Date: 20211204
  Transmission Date: 20220303
  Serious: Yes (Other)
  Sender: FDA-Public Use
  Company Number: BR-NOVARTISPH-NVSC2021BR229799

PATIENT
  Age: 75 Year
  Sex: Male

DRUGS (4)
  1. DIOVAN [Suspect]
     Active Substance: VALSARTAN
     Indication: Product used for unknown indication
     Dosage: 320 MG
     Route: 065
     Dates: start: 20210929
  2. AMLODIPINE [Concomitant]
     Active Substance: AMLODIPINE BESYLATE
     Indication: Product used for unknown indication
     Dosage: UNK
     Route: 065
  3. INDAPAMIDE [Concomitant]
     Active Substance: INDAPAMIDE
     Indication: Product used for unknown indication
     Dosage: UNK
     Route: 065
  4. BISOPROLOL FUMARATE [Concomitant]
     Active Substance: BISOPROLOL FUMARATE
     Indication: Product used for unknown indication
     Dosage: UNK
     Route: 065

REACTIONS (5)
  - Arrhythmia [Recovered/Resolved]
  - Blood pressure increased [Recovered/Resolved]
  - Arthralgia [Recovered/Resolved]
  - Headache [Recovered/Resolved]
  - Drug ineffective [Unknown]

NARRATIVE: CASE EVENT DATE: 20210929
